FAERS Safety Report 5769164-1 (Version None)
Quarter: 2008Q2

REPORT INFORMATION
  Report Type: 
  Country: None (occurrence: None)
  Receive Date: 20080612
  Receipt Date: 20080324
  Transmission Date: 20081010
  Serious: No
  Sender: FDA-Public Use
  Company Number: US-ABBOTT-08P-163-0443990-00

PATIENT
  Weight: 86.26 kg

DRUGS (2)
  1. HUMIRA [Suspect]
     Indication: CROHN'S DISEASE
     Route: 058
     Dates: start: 20080222
  2. HUMIRA [Suspect]
     Route: 058

REACTIONS (3)
  - COUGH [None]
  - INFLUENZA LIKE ILLNESS [None]
  - WHEEZING [None]
